FAERS Safety Report 20146743 (Version 1)
Quarter: 2021Q4

REPORT INFORMATION
  Report Type: Spontaneous
  Country: ZA (occurrence: ZA)
  Receive Date: 20211203
  Receipt Date: 20211203
  Transmission Date: 20220303
  Serious: Yes (Life-Threatening)
  Sender: FDA-Public Use
  Company Number: ZA-GUERBET-ZA-20210007

PATIENT
  Age: 41 Year
  Sex: Female

DRUGS (2)
  1. OPTIRAY 350 [Suspect]
     Active Substance: IOVERSOL
     Indication: Angiogram
     Route: 042
     Dates: start: 20211116, end: 20211116
  2. OPTIRAY 350 [Suspect]
     Active Substance: IOVERSOL
     Indication: Computerised tomogram head

REACTIONS (3)
  - Chest pain [Recovered/Resolved]
  - Feeling abnormal [Recovered/Resolved]
  - Air embolism [Recovered/Resolved]

NARRATIVE: CASE EVENT DATE: 20211116
